FAERS Safety Report 8001481-7 (Version None)
Quarter: 2011Q4

REPORT INFORMATION
  Report Type: 
  Country: None (occurrence: None)
  Receive Date: 20111222
  Receipt Date: 20111214
  Transmission Date: 20120403
  Serious: Yes (Hospitalization)
  Sender: FDA-Public Use
  Company Number: JP-AMGEN-KDC433621

PATIENT
  Age: 63 Year
  Sex: Male
  Weight: 57 kg

DRUGS (30)
  1. PANITUMUMAB [Suspect]
     Dosage: 4.8 MG/KG, Q2WK
     Route: 041
     Dates: start: 20100804, end: 20100804
  2. TOPOTECAN [Suspect]
     Indication: COLORECTAL CANCER
     Route: 041
     Dates: start: 20100804, end: 20101208
  3. LEVOLEUCOVORIN CALCIUM [Concomitant]
     Indication: COLORECTAL CANCER
     Route: 041
     Dates: start: 20100804, end: 20101208
  4. HICEE [Concomitant]
     Dosage: 3 G, QD
     Route: 048
  5. PANITUMUMAB [Suspect]
     Dosage: 3.6 MG/KG, Q2WK
     Route: 041
     Dates: start: 20101117, end: 20101117
  6. LANSOPRAZOLE [Concomitant]
     Dosage: UNK UNK, UNK
     Route: 048
  7. ANTIHISTAMINES [Concomitant]
     Indication: PROPHYLAXIS
     Route: 065
  8. PANITUMUMAB [Suspect]
     Dosage: 2.4 MG/KG, Q2WK
     Route: 041
     Dates: start: 20101208, end: 20101208
  9. UNSPECIFIED HERBAL [Concomitant]
     Route: 048
  10. URSO 250 [Concomitant]
     Route: 048
  11. SHAKUYAKUKANZOUTOU [Concomitant]
     Route: 048
  12. ALDACTONE [Concomitant]
     Dosage: 25 MG, QD
     Route: 048
  13. JUSO [Concomitant]
     Dosage: 1.8 G, QD
     Route: 048
  14. CORTICOSTEROIDS [Concomitant]
     Indication: PROPHYLAXIS
     Dosage: UNK UNK, UNK
     Route: 065
  15. FLUOROURACIL [Concomitant]
     Indication: COLORECTAL CANCER
     Route: 040
     Dates: start: 20100804, end: 20101208
  16. PREDNISOLONE [Concomitant]
     Dosage: 5 MG, QD
     Route: 048
  17. MAGNESIUM OXIDE [Concomitant]
     Dosage: 1.5 G, QD
     Route: 048
  18. PANITUMUMAB [Suspect]
     Dosage: 4.8 MG/KG, Q2WK
     Route: 041
     Dates: start: 20100824, end: 20101004
  19. GOSHAJINKIGAN [Concomitant]
     Route: 048
  20. SULFAMETHOXAZOLE AND TRIMETHOPRIM [Concomitant]
     Dosage: .5 G, QD
     Route: 048
  21. MOTILIUM [Concomitant]
     Indication: PROPHYLAXIS
     Route: 048
  22. PANITUMUMAB [Suspect]
     Dosage: 3.6 MG/KG, Q2WK
     Route: 041
     Dates: start: 20101018, end: 20101018
  23. PANITUMUMAB [Suspect]
     Dosage: 3.6 MG/KG, Q2WK
     Route: 041
     Dates: start: 20110408
  24. FLUOROURACIL [Concomitant]
     Route: 041
     Dates: start: 20100804, end: 20101208
  25. UZEL [Concomitant]
     Indication: COLORECTAL CANCER
     Route: 048
     Dates: start: 20101229, end: 20110215
  26. UFT [Concomitant]
     Indication: COLORECTAL CANCER
     Route: 048
     Dates: start: 20101229, end: 20110215
  27. LIVACT [Concomitant]
     Route: 048
  28. PANITUMUMAB [Suspect]
     Dosage: 2.4 MG/KG, Q2WK
     Route: 041
     Dates: start: 20110323, end: 20110323
  29. TSUMURA HOCHU EKKI-TO [Concomitant]
     Route: 048
  30. LASIX [Concomitant]
     Dosage: 20 MG, QD
     Route: 048

REACTIONS (7)
  - WHITE BLOOD CELL COUNT DECREASED [None]
  - LIP ULCERATION [None]
  - FALL [None]
  - SPINAL COMPRESSION FRACTURE [None]
  - DECREASED APPETITE [None]
  - MOUTH ULCERATION [None]
  - MALAISE [None]
